FAERS Safety Report 10150320 (Version 1)
Quarter: 2014Q2

REPORT INFORMATION
  Report Type: Spontaneous
  Country: CN (occurrence: CN)
  Receive Date: 20140502
  Receipt Date: 20140502
  Transmission Date: 20141212
  Serious: Yes (Hospitalization)
  Sender: FDA-Public Use
  Company Number: CN-B.I. PHARMACEUTICALS,INC./RIDGEFIELD-2014-BI-19106GD

PATIENT
  Age: 8 Year
  Sex: Female

DRUGS (2)
  1. DIPYRIDAMOLE [Suspect]
     Indication: NEPHROTIC SYNDROME
     Dosage: 3 MG/KG
     Route: 048
  2. PREDNISONE [Suspect]
     Indication: NEPHROTIC SYNDROME
     Dosage: 2 MG/KG
     Route: 048

REACTIONS (14)
  - Cerebral haemorrhage [Recovered/Resolved]
  - Coma [Recovered/Resolved]
  - Headache [Unknown]
  - Loss of consciousness [Recovered/Resolved]
  - Pyrexia [Recovered/Resolved]
  - Proteinuria [Unknown]
  - Hyperlipidaemia [Unknown]
  - Thrombocytopenia [Unknown]
  - Hypertension [Unknown]
  - Pupillary reflex impaired [Unknown]
  - Hypotonia [Unknown]
  - Hypoalbuminaemia [Unknown]
  - Cushingoid [Unknown]
  - Oedema [Unknown]
